FAERS Safety Report 7609040-2 (Version None)
Quarter: 2011Q3

REPORT INFORMATION
  Report Type: 
  Country: None (occurrence: None)
  Receive Date: 20110714
  Receipt Date: 20110706
  Transmission Date: 20111222
  Serious: Yes (Death, Other)
  Sender: FDA-Public Use
  Company Number: JP-ROCHE-788471

PATIENT
  Sex: Female
  Weight: 42 kg

DRUGS (11)
  1. URSO 250 [Concomitant]
     Route: 048
     Dates: start: 20100101
  2. ZANTAC [Concomitant]
     Route: 048
     Dates: start: 20100101
  3. MUCOSTA [Concomitant]
     Route: 048
     Dates: start: 20100101
  4. BREDININ [Concomitant]
     Route: 048
     Dates: start: 20100101
  5. ACTEMRA [Suspect]
     Dosage: DOSE FORM: INJECTION
     Route: 041
     Dates: start: 20110601, end: 20110601
  6. PROGRAF [Concomitant]
     Route: 048
     Dates: start: 20100101
  7. ACTEMRA [Suspect]
     Indication: RHEUMATOID ARTHRITIS
     Dosage: DOSE FORM: INJECTION
     Route: 041
     Dates: start: 20100802, end: 20110309
  8. CIBENOL [Concomitant]
     Route: 048
     Dates: start: 20100101
  9. ACTONEL [Concomitant]
     Route: 048
     Dates: start: 20100101
  10. METOPROLOL TARTRATE [Concomitant]
     Route: 048
     Dates: start: 20100101
  11. TENORMIN [Concomitant]
     Route: 048
     Dates: start: 20100101

REACTIONS (8)
  - DIARRHOEA [None]
  - SEPSIS [None]
  - ARTHRITIS BACTERIAL [None]
  - SKIN ULCER [None]
  - VOMITING [None]
  - SUBCUTANEOUS ABSCESS [None]
  - DYSPNOEA [None]
  - CARDIAC ARREST [None]
